FAERS Safety Report 14984856 (Version 1)
Quarter: 2018Q2

REPORT INFORMATION
  Report Type: Spontaneous
  Country: US (occurrence: US)
  Receive Date: 20180607
  Receipt Date: 20180607
  Transmission Date: 20180711
  Serious: No
  Sender: FDA-Public Use
  Company Number: US-FOUNDATIONCONSUMERHC-2018-US-006152

PATIENT
  Age: 36 Year
  Sex: Female
  Weight: 54.43 kg

DRUGS (4)
  1. PLAN B ONE-STEP [Suspect]
     Active Substance: LEVONORGESTREL
     Dosage: 1 TAB PO
     Route: 048
     Dates: start: 20180405, end: 20180405
  2. IRON SUPPLEMENT UNSPECIFIED [Concomitant]
     Dosage: AS DIRECTED
     Route: 065
  3. BIRTH CONTROL UNSPECIFIED [Concomitant]
     Dosage: AS DIRECTED
     Route: 048
  4. VITAMIN D UNSPECIFIED [Concomitant]
     Dosage: AS DIRECTED
     Route: 065

REACTIONS (1)
  - Paraesthesia [Not Recovered/Not Resolved]

NARRATIVE: CASE EVENT DATE: 20180412
